FAERS Safety Report 11173796 (Version 2)
Quarter: 2015Q3

REPORT INFORMATION
  Report Type: Report from Study
  Country: US (occurrence: US)
  Receive Date: 20150609
  Receipt Date: 20150811
  Transmission Date: 20151125
  Serious: Yes (Other)
  Sender: FDA-Public Use
  Company Number: US-GILEAD-2015-0143242

PATIENT
  Age: 42 Year
  Sex: Male

DRUGS (3)
  1. REMODULIN [Concomitant]
     Active Substance: TREPROSTINIL
  2. ADCIRCA [Concomitant]
     Active Substance: TADALAFIL
  3. AMBRISENTAN [Suspect]
     Active Substance: AMBRISENTAN
     Indication: PULMONARY ARTERIAL HYPERTENSION
     Dosage: 10 MG, QD
     Route: 065
     Dates: start: 20141210

REACTIONS (4)
  - Cerebral haemorrhage [Unknown]
  - Infusion site erythema [Not Recovered/Not Resolved]
  - Infusion site warmth [Not Recovered/Not Resolved]
  - Infusion site pain [Unknown]

NARRATIVE: CASE EVENT DATE: 201505
